FAERS Safety Report 9300929 (Version 1)
Quarter: 2013Q2

REPORT INFORMATION
  Report Type: Spontaneous
  Country: US (occurrence: None)
  Receive Date: 20130520
  Receipt Date: 20130520
  Transmission Date: 20140414
  Serious: Yes (Hospitalization)
  Sender: FDA-Public Use
  Company Number: None

PATIENT
  Age: 90 Year
  Sex: Female

DRUGS (1)
  1. ALENDRONATE 35MG TEVA PHARMACEUTICALS MERCK + CO [Suspect]
     Indication: OSTEOPOROSIS
     Route: 048

REACTIONS (1)
  - Femur fracture [None]
